FAERS Safety Report 8184764-X (Version None)
Quarter: 2012Q1

REPORT INFORMATION
  Report Type: 
  Country: None (occurrence: None)
  Receive Date: 20120305
  Receipt Date: 20120305
  Transmission Date: 20120608
  Serious: Yes (Death)
  Sender: FDA-Public Use
  Company Number: None

PATIENT
  Age: 55 Year
  Sex: Female
  Weight: 104.32 kg

DRUGS (1)
  1. HUMIRA [Suspect]
     Indication: PSORIASIS
     Route: 051

REACTIONS (6)
  - BRAIN DEATH [None]
  - CARDIAC FAILURE CONGESTIVE [None]
  - SEPSIS [None]
  - ASCITES [None]
  - COMA [None]
  - RESUSCITATION [None]
